FAERS Safety Report 25531687 (Version 3)
Quarter: 2025Q4

REPORT INFORMATION
  Report Type: Spontaneous
  Country: US (occurrence: US)
  Receive Date: 20250709
  Receipt Date: 20251015
  Transmission Date: 20260118
  Serious: Yes (Hospitalization)
  Sender: ROCHE
  Company Number: US-ROCHE-10000329882

PATIENT
  Sex: Male

DRUGS (13)
  1. XOLAIR [Suspect]
     Active Substance: OMALIZUMAB
     Indication: Asthma
     Dosage: STRENGTH:75MG/0.5ML
     Route: 058
     Dates: start: 20250502
  2. XOLAIR [Suspect]
     Active Substance: OMALIZUMAB
     Dosage: STRENGTH:150MG/ML
     Route: 058
     Dates: start: 20250502
  3. XOLAIR [Suspect]
     Active Substance: OMALIZUMAB
     Dosage: STRENGTH: 75 MG/0.5ML
     Route: 058
     Dates: start: 20250502
  4. BUTALBITAL AND ACETAMINOPHEN [Concomitant]
     Active Substance: ACETAMINOPHEN\BUTALBITAL
  5. DULOXETINE [Concomitant]
     Active Substance: DULOXETINE
  6. FAMOTIDINE [Concomitant]
     Active Substance: FAMOTIDINE
  7. FLUTICASONE [Concomitant]
     Active Substance: FLUTICASONE
  8. FOLIC ACID [Concomitant]
     Active Substance: FOLIC ACID
  9. LEFLUNOMIDE [Concomitant]
     Active Substance: LEFLUNOMIDE
  10. LYRICA [Concomitant]
     Active Substance: PREGABALIN
  11. METHOTREXATE [Concomitant]
     Active Substance: METHOTREXATE
  12. MOUNJARO [Concomitant]
     Active Substance: TIRZEPATIDE
  13. NAPROXEN [Concomitant]
     Active Substance: NAPROXEN

REACTIONS (2)
  - Asthma [Unknown]
  - Infection [Unknown]
